FAERS Safety Report 9187515 (Version 1)
Quarter: 2013Q1

REPORT INFORMATION
  Report Type: Report from Study
  Country: CA (occurrence: CA)
  Receive Date: 20130325
  Receipt Date: 20130325
  Transmission Date: 20140127
  Serious: Yes (Other)
  Sender: FDA-Public Use
  Company Number: CA-JNJFOC-20130309025

PATIENT
  Sex: Female
  Weight: 53.07 kg

DRUGS (2)
  1. REMICADE [Suspect]
     Indication: CROHN^S DISEASE
     Route: 042
     Dates: start: 2007
  2. STEROIDS NOS [Concomitant]
     Indication: PREMEDICATION
     Route: 065

REACTIONS (7)
  - Anaemia [Recovering/Resolving]
  - Adverse drug reaction [Unknown]
  - Weight increased [Unknown]
  - Obstruction [Unknown]
  - Influenza [Unknown]
  - Hypotension [Unknown]
  - Lethargy [Unknown]
